FAERS Safety Report 8890646 (Version 1)
Quarter: 2012Q4

REPORT INFORMATION
  Report Type: 
  Country: US (occurrence: US)
  Receive Date: 20121107
  Receipt Date: 20121107
  Transmission Date: 20130627
  Serious: Yes (Other)
  Sender: FDA-Public Use
  Company Number: US-JNJFOC-20121017212

PATIENT
  Sex: Female
  Weight: 63.5 kg

DRUGS (3)
  1. TYLENOL WITH CODEINE [Suspect]
     Indication: PRODUCT USED FOR UNKNOWN INDICATION
     Dosage: started 30 years ago
     Route: 065
     Dates: start: 1982
  2. XARELTO [Concomitant]
     Indication: CEREBROVASCULAR ACCIDENT PROPHYLAXIS
     Route: 048
     Dates: start: 201210
  3. VITAMINS NOS [Concomitant]

REACTIONS (7)
  - Cerebrovascular accident [Recovered/Resolved]
  - Transient ischaemic attack [Recovered/Resolved]
  - Aortic calcification [Unknown]
  - Nausea [Recovered/Resolved]
  - Adverse event [Unknown]
  - Pain in extremity [Not Recovered/Not Resolved]
  - Gait disturbance [Not Recovered/Not Resolved]
